FAERS Safety Report 6624717-3 (Version None)
Quarter: 2010Q1

REPORT INFORMATION
  Report Type: 
  Country: None (occurrence: None)
  Receive Date: 20100310
  Receipt Date: 20100303
  Transmission Date: 20100710
  Serious: Yes (Death)
  Sender: FDA-Public Use
  Company Number: US-SANOFI-AVENTIS-2010SA009433

PATIENT
  Age: 55 Year
  Sex: Male
  Weight: 93 kg

DRUGS (13)
  1. LOVENOX [Suspect]
     Indication: DEEP VEIN THROMBOSIS
     Dosage: 120 OR 125MG BID
     Route: 065
     Dates: start: 20091201
  2. ALBUTEROL [Concomitant]
  3. ATROVENT [Concomitant]
  4. FUROSEMIDE [Concomitant]
  5. ALDACTONE [Concomitant]
  6. LORAZEPAM [Concomitant]
  7. PREDNISONE [Concomitant]
  8. DEXAMETHASONE [Concomitant]
  9. GUAIFENESIN [Concomitant]
  10. TIOTROPIUM BROMIDE [Concomitant]
  11. METHADONE HYDROCHLORIDE [Concomitant]
     Indication: PAIN
  12. MORPHINE [Concomitant]
     Indication: PAIN
  13. HYDROMORPHONE HCL [Concomitant]
     Indication: PAIN

REACTIONS (1)
  - LUNG NEOPLASM MALIGNANT [None]
